FAERS Safety Report 12627657 (Version 1)
Quarter: 2016Q3

REPORT INFORMATION
  Report Type: Spontaneous
  Country: DE (occurrence: DE)
  Receive Date: 20160805
  Receipt Date: 20160805
  Transmission Date: 20161109
  Serious: Yes (Other)
  Sender: FDA-Public Use
  Company Number: GXKR2016DE003704

PATIENT
  Age: 15 Year
  Sex: Male

DRUGS (1)
  1. OMEPRAZOL [Suspect]
     Active Substance: OMEPRAZOLE
     Indication: CONSTIPATION
     Dosage: 40 MG, TWICE DAILY
     Route: 048

REACTIONS (2)
  - Ileus [Unknown]
  - Abdominal pain [Recovered/Resolved]
